FAERS Safety Report 23803590 (Version 1)
Quarter: 2024Q2

REPORT INFORMATION
  Report Type: Spontaneous
  Country: US (occurrence: None)
  Receive Date: 20240501
  Receipt Date: 20240501
  Transmission Date: 20240716
  Serious: No
  Sender: FDA-Public Use
  Company Number: US-Axsome Therapeutics, Inc.-AXS202401-000030

PATIENT
  Age: 61 Year

DRUGS (4)
  1. SUNOSI [Suspect]
     Active Substance: SOLRIAMFETOL
     Indication: Narcolepsy
     Route: 065
     Dates: start: 20240112
  2. SUNOSI [Suspect]
     Active Substance: SOLRIAMFETOL
     Route: 065
     Dates: start: 202311, end: 20240111
  3. URSODIOL [Concomitant]
     Active Substance: URSODIOL
     Indication: Product used for unknown indication
     Dosage: UNK
     Route: 065
  4. PLAQUENIL [Concomitant]
     Active Substance: HYDROXYCHLOROQUINE SULFATE
     Indication: Product used for unknown indication
     Dosage: UNK
     Route: 065

REACTIONS (4)
  - Head titubation [Not Recovered/Not Resolved]
  - Swollen tongue [Unknown]
  - Tremor [Unknown]
  - Dry mouth [Unknown]

NARRATIVE: CASE EVENT DATE: 20240111
